FAERS Safety Report 9174874 (Version 2)
Quarter: 2014Q2

REPORT INFORMATION
  Report Type: Report from Study
  Country: GB (occurrence: GB)
  Receive Date: 20130320
  Receipt Date: 20140620
  Transmission Date: 20141212
  Serious: Yes (Hospitalization)
  Sender: FDA-Public Use
  Company Number: GB-ASTRAZENECA-2013SE16374

PATIENT
  Age: 18563 Day
  Sex: Male
  Weight: 71 kg

DRUGS (18)
  1. VANDETANIB [Suspect]
     Indication: ADENOCARCINOMA PANCREAS
     Route: 048
     Dates: start: 20120904, end: 20130205
  2. GEMCITABINE [Suspect]
     Indication: ADENOCARCINOMA PANCREAS
     Route: 042
     Dates: start: 20120904, end: 20120904
  3. GEMCITABINE [Suspect]
     Indication: ADENOCARCINOMA PANCREAS
     Route: 042
  4. GEMCITABINE [Suspect]
     Indication: ADENOCARCINOMA PANCREAS
     Route: 042
  5. GEMCITABINE [Suspect]
     Indication: ADENOCARCINOMA PANCREAS
     Route: 042
  6. GEMCITABINE [Suspect]
     Indication: ADENOCARCINOMA PANCREAS
     Route: 042
  7. GEMCITABINE [Suspect]
     Indication: ADENOCARCINOMA PANCREAS
     Route: 042
  8. GEMCITABINE [Suspect]
     Indication: ADENOCARCINOMA PANCREAS
     Route: 042
  9. GEMCITABINE [Suspect]
     Indication: ADENOCARCINOMA PANCREAS
     Route: 042
  10. GEMCITABINE [Suspect]
     Indication: ADENOCARCINOMA PANCREAS
     Route: 042
  11. GEMCITABINE [Suspect]
     Indication: ADENOCARCINOMA PANCREAS
     Route: 042
     Dates: start: 20130129, end: 20130129
  12. CREON [Concomitant]
     Indication: PANCREATIC ENZYME ABNORMALITY
     Route: 048
     Dates: start: 20120615
  13. PARACETAMOL [Concomitant]
     Indication: PAIN
     Route: 048
     Dates: start: 20120615
  14. CANNABIS [Concomitant]
     Indication: PAIN
     Route: 055
     Dates: start: 20120615
  15. MOVICOL [Concomitant]
     Indication: CONSTIPATION
     Dosage: 1 SACHET, PRN
     Route: 048
     Dates: start: 20121030
  16. LOPERAMIDE [Concomitant]
     Indication: DIARRHOEA
     Route: 048
     Dates: start: 20121017
  17. OXYCONTIN [Concomitant]
     Indication: PAIN
     Route: 048
     Dates: start: 20120615
  18. OXYNORM [Concomitant]
     Indication: PAIN
     Route: 048
     Dates: start: 20120615

REACTIONS (1)
  - Renal failure acute [Recovered/Resolved with Sequelae]
